FAERS Safety Report 14132429 (Version 1)
Quarter: 2017Q4

REPORT INFORMATION
  Report Type: Spontaneous
  Country: US (occurrence: None)
  Receive Date: 20171026
  Receipt Date: 20171026
  Transmission Date: 20180321
  Serious: Yes (Disabling, Other)
  Sender: FDA-Public Use
  Company Number: None

PATIENT
  Age: 35 Year
  Sex: Male
  Weight: 120.2 kg

DRUGS (3)
  1. LYRICA [Concomitant]
     Active Substance: PREGABALIN
  2. OMEPRAZOLE. [Concomitant]
     Active Substance: OMEPRAZOLE
  3. OXYCODONE HYDROCHLORIDE1 IR 30MG, 30 MG [Suspect]
     Active Substance: OXYCODONE HYDROCHLORIDE
     Indication: PAIN
     Dosage: ?          QUANTITY:180 TABLET(S);?
     Route: 048
     Dates: start: 20171012, end: 20171026

REACTIONS (8)
  - Drug effect decreased [None]
  - Nausea [None]
  - Headache [None]
  - Photophobia [None]
  - Vision blurred [None]
  - Cycloplegia [None]
  - Wheezing [None]
  - Product substitution issue [None]

NARRATIVE: CASE EVENT DATE: 20171012
